FAERS Safety Report 8981973 (Version 1)
Quarter: 2012Q4

REPORT INFORMATION
  Report Type: 
  Country: US (occurrence: US)
  Receive Date: 20121212
  Receipt Date: 20121212
  Transmission Date: 20130627
  Serious: Yes (Death, Hospitalization, Other)
  Sender: FDA-Public Use
  Company Number: US-ASTELLAS-770709

PATIENT
  Age: 72 None
  Sex: Female

DRUGS (1)
  1. TARCEVA [Suspect]
     Indication: OESOPHAGEAL CARCINOMA
     Route: 048

REACTIONS (5)
  - Death [Fatal]
  - Gastrostomy tube insertion [Unknown]
  - Mental status changes [Unknown]
  - Pyrexia [Unknown]
  - General physical health deterioration [Unknown]
